FAERS Safety Report 10070533 (Version 1)
Quarter: 2014Q2

REPORT INFORMATION
  Report Type: Spontaneous
  Country: US (occurrence: None)
  Receive Date: 20140408
  Receipt Date: 20140408
  Transmission Date: 20141212
  Serious: Yes (Hospitalization)
  Sender: FDA-Public Use
  Company Number: 001706140A

PATIENT
  Age: 70 Year
  Sex: Female

DRUGS (6)
  1. MEANINGFUL BEAUTY DAY CREAM SPF 20 [Suspect]
     Route: 061
     Dates: start: 20130601, end: 20130716
  2. MEANINGFUL BEAUTY CINDY CRAWFORD SKIN BRIGHTENING DECOLLETE AND NECK TREATMENT SPF 15 [Suspect]
     Route: 061
     Dates: start: 20130601, end: 20130716
  3. HUMALOG INSULIN [Concomitant]
  4. METFORMIN [Concomitant]
  5. ATENOLOL [Concomitant]
  6. SHAKLEE SUPPLEMENTS [Concomitant]

REACTIONS (3)
  - Erythema [None]
  - Swelling face [None]
  - Injection site infection [None]
